FAERS Safety Report 6831457-4 (Version None)
Quarter: 2010Q3

REPORT INFORMATION
  Report Type: 
  Country: None (occurrence: None)
  Receive Date: 20100712
  Receipt Date: 20100707
  Transmission Date: 20110219
  Serious: Yes (Hospitalization)
  Sender: FDA-Public Use
  Company Number: A0869295A

PATIENT
  Age: 56 Year
  Sex: Male

DRUGS (1)
  1. AVANDIA [Suspect]
     Route: 048
     Dates: start: 19900101

REACTIONS (4)
  - DECREASED ACTIVITY [None]
  - DISABILITY [None]
  - LIBIDO DECREASED [None]
  - MYOCARDIAL INFARCTION [None]
